FAERS Safety Report 9607373 (Version 1)
Quarter: 2013Q4

REPORT INFORMATION
  Report Type: Spontaneous
  Country: US (occurrence: None)
  Receive Date: 20131007
  Receipt Date: 20131007
  Transmission Date: 20140711
  Serious: Yes (Disabling, Other)
  Sender: FDA-Public Use
  Company Number: None

PATIENT
  Age: 56 Year
  Sex: Female
  Weight: 63.5 kg

DRUGS (1)
  1. LEVAQUIN [Suspect]
     Indication: LITHOTRIPSY
     Dosage: 1 PILL
     Route: 048
     Dates: start: 20080815, end: 20090815

REACTIONS (7)
  - Malaise [None]
  - Pyrexia [None]
  - Hydronephrosis [None]
  - Migraine [None]
  - Myalgia [None]
  - Arthralgia [None]
  - Impaired work ability [None]
